FAERS Safety Report 6230859-7 (Version None)
Quarter: 2009Q2

REPORT INFORMATION
  Report Type: 
  Country: None (occurrence: None)
  Receive Date: 20090616
  Receipt Date: 20090609
  Transmission Date: 20091009
  Serious: Yes (Hospitalization)
  Sender: FDA-Public Use
  Company Number: US-JNJFOC-20090603466

PATIENT
  Sex: Male
  Weight: 49.9 kg

DRUGS (2)
  1. RISPERDAL [Suspect]
     Indication: AGGRESSION
     Route: 048
  2. VYVANSE [Concomitant]
     Route: 065

REACTIONS (2)
  - AGGRESSION [None]
  - TACHYCARDIA [None]
